FAERS Safety Report 21843415 (Version 1)
Quarter: 2023Q1

REPORT INFORMATION
  Report Type: Spontaneous
  Country: US (occurrence: US)
  Receive Date: 20230110
  Receipt Date: 20230110
  Transmission Date: 20230417
  Serious: No
  Sender: FDA-Public Use
  Company Number: US-SA-SAC20230109001046

PATIENT
  Sex: Female

DRUGS (1)
  1. AUBAGIO [Suspect]
     Active Substance: TERIFLUNOMIDE
     Indication: Multiple sclerosis
     Dosage: 14 MG, QD
     Route: 048
     Dates: start: 20190928

REACTIONS (5)
  - Pain [Not Recovered/Not Resolved]
  - Anosmia [Not Recovered/Not Resolved]
  - COVID-19 [Unknown]
  - Ageusia [Not Recovered/Not Resolved]
  - Paraesthesia [Recovered/Resolved]
